FAERS Safety Report 8771203 (Version 1)
Quarter: 2012Q4

REPORT INFORMATION
  Report Type: 
  Country: US (occurrence: US)
  Receive Date: 20120905
  Receipt Date: 20120905
  Transmission Date: 20130627
  Serious: Yes (Other)
  Sender: FDA-Public Use
  Company Number: US-BAXTER-2012BAX015612

PATIENT
  Age: 42 Year
  Sex: Male

DRUGS (1)
  1. GAMMAGARD LIQUID [Suspect]
     Indication: COMMON VARIABLE IMMUNODEFICIENCY
     Route: 065

REACTIONS (1)
  - Thrombocytopenia [Unknown]
